FAERS Safety Report 11493721 (Version 1)
Quarter: 2015Q3

REPORT INFORMATION
  Report Type: Spontaneous
  Country: US (occurrence: US)
  Receive Date: 20150911
  Receipt Date: 20150911
  Transmission Date: 20151125
  Serious: Yes (Other)
  Sender: FDA-Public Use
  Company Number: US-ROCHE-1046593

PATIENT
  Sex: Male

DRUGS (3)
  1. COPEGUS [Suspect]
     Active Substance: RIBAVIRIN
     Indication: HEPATITIS C
     Route: 065
  2. TELAPREVIR [Suspect]
     Active Substance: TELAPREVIR
     Indication: HEPATITIS C
  3. PEGASYS [Suspect]
     Active Substance: PEGINTERFERON ALFA-2A
     Indication: HEPATITIS C
     Route: 058

REACTIONS (11)
  - Fatigue [Unknown]
  - Chest pain [Unknown]
  - Depression [Unknown]
  - Suicidal ideation [Unknown]
  - Dry skin [Unknown]
  - Somnolence [Unknown]
  - Asthenia [Unknown]
  - Dyspnoea [Unknown]
  - Diarrhoea [Unknown]
  - Alopecia [Unknown]
  - Decreased appetite [Unknown]
